FAERS Safety Report 21036652 (Version 1)
Quarter: 2022Q3

REPORT INFORMATION
  Report Type: Spontaneous
  Country: US (occurrence: US)
  Receive Date: 20220702
  Receipt Date: 20220702
  Transmission Date: 20221027
  Serious: No
  Sender: FDA-Public Use
  Company Number: US-BRISTOL-MYERS SQUIBB COMPANY-2022-067347

PATIENT
  Age: 70 Year
  Sex: Male

DRUGS (1)
  1. POMALYST [Suspect]
     Active Substance: POMALIDOMIDE
     Indication: Plasma cell myeloma
     Dosage: 1 DF : 1 CAPSULE?EVERY DAY ON DAYS 1-21 EVERY 28 DAYS
     Route: 048

REACTIONS (2)
  - Oropharyngeal pain [Unknown]
  - Sinusitis [Unknown]
